FAERS Safety Report 22628690 (Version 1)
Quarter: 2023Q2

REPORT INFORMATION
  Report Type: Spontaneous
  Country: US (occurrence: None)
  Receive Date: 20230621
  Receipt Date: 20230621
  Transmission Date: 20230721
  Serious: Yes (Other)
  Sender: FDA-Public Use
  Company Number: None

PATIENT
  Age: 50 Year
  Sex: Male
  Weight: 83.25 kg

DRUGS (4)
  1. SERTRALINE HYDROCHLORIDE [Suspect]
     Active Substance: SERTRALINE HYDROCHLORIDE
     Indication: Depression
     Dosage: OTHER QUANTITY : 1 TABLET(S);?FREQUENCY : DAILY;?
     Route: 048
     Dates: start: 20230213, end: 20230215
  2. AZADIRACHTA INDICA BARK [Concomitant]
     Active Substance: AZADIRACHTA INDICA BARK
  3. HERBALS\TURMERIC [Concomitant]
     Active Substance: HERBALS\TURMERIC
  4. multivitamin for men [Concomitant]

REACTIONS (5)
  - Intrusive thoughts [None]
  - Somnolence [None]
  - Depressed mood [None]
  - Depression [None]
  - Yawning [None]

NARRATIVE: CASE EVENT DATE: 20230215
